FAERS Safety Report 19928526 (Version 1)
Quarter: 2021Q4

REPORT INFORMATION
  Report Type: Spontaneous
  Country: US (occurrence: US)
  Receive Date: 20211004
  Receipt Date: 20211004
  Transmission Date: 20220303
  Serious: No
  Sender: FDA-Public Use
  Company Number: None

PATIENT
  Age: 13 Month
  Sex: Female
  Weight: 9 kg

DRUGS (1)
  1. COPPERTONE PURE AND SIMPLE KIDS SPF 50 [Suspect]
     Active Substance: ZINC OXIDE
     Indication: Prophylaxis against solar radiation
     Dates: start: 20210622, end: 20210623

REACTIONS (1)
  - Rash [None]

NARRATIVE: CASE EVENT DATE: 20210623
